FAERS Safety Report 17890127 (Version 1)
Quarter: 2020Q2

REPORT INFORMATION
  Report Type: Spontaneous
  Country: US (occurrence: US)
  Receive Date: 20200612
  Receipt Date: 20200612
  Transmission Date: 20200714
  Serious: Yes (Other)
  Sender: FDA-Public Use
  Company Number: US-ASTRAZENECA-2020SE72841

PATIENT
  Sex: Male
  Weight: 96.2 kg

DRUGS (1)
  1. TAGRISSO [Suspect]
     Active Substance: OSIMERTINIB
     Indication: NON-SMALL CELL LUNG CANCER METASTATIC
     Route: 048
     Dates: start: 20200115, end: 20200312

REACTIONS (4)
  - Oropharyngeal discomfort [Unknown]
  - Malignant neoplasm progression [Unknown]
  - Vocal cord disorder [Unknown]
  - Drug ineffective [Unknown]
